FAERS Safety Report 15659059 (Version 1)
Quarter: 2018Q4

REPORT INFORMATION
  Report Type: Report from Study
  Country: US (occurrence: US)
  Receive Date: 20181127
  Receipt Date: 20181127
  Transmission Date: 20190205
  Serious: Yes (Hospitalization)
  Sender: FDA-Public Use
  Company Number: US-SA-2018SA318917

PATIENT
  Age: 70 Year
  Sex: Female

DRUGS (5)
  1. INSULIN GLARGINE [Suspect]
     Active Substance: INSULIN GLARGINE
     Indication: TYPE 2 DIABETES MELLITUS
     Dosage: UNK
     Route: 058
     Dates: start: 2004
  2. HUMALOG [Concomitant]
     Active Substance: INSULIN LISPRO
  3. APIDRA [Concomitant]
     Active Substance: INSULIN GLULISINE
     Indication: TYPE 2 DIABETES MELLITUS
     Dosage: 6 U, WITH EVERY MEAL
     Route: 058
  4. NOVOLOG [Concomitant]
     Active Substance: INSULIN ASPART
  5. APIDRA [Concomitant]
     Active Substance: INSULIN GLULISINE
     Dosage: 3 U, WITH EVERY MEAL
     Dates: start: 20181016

REACTIONS (7)
  - Lyme disease [Unknown]
  - Drug hypersensitivity [Not Recovered/Not Resolved]
  - Loss of consciousness [Recovered/Resolved]
  - General physical condition decreased [Recovered/Resolved]
  - Fall [Unknown]
  - Lower limb fracture [Recovered/Resolved]
  - Blood glucose increased [Recovered/Resolved]

NARRATIVE: CASE EVENT DATE: 2016
